FAERS Safety Report 8708518 (Version 3)
Quarter: 2012Q4

REPORT INFORMATION
  Report Type: 
  Country: DE (occurrence: DE)
  Receive Date: 20120806
  Receipt Date: 20120925
  Transmission Date: 20130627
  Serious: Yes (Hospitalization, Other)
  Sender: FDA-Public Use
  Company Number: DE-AMGEN-DEUSP2012047962

PATIENT
  Age: 35 Year
  Sex: Female

DRUGS (10)
  1. ENBREL [Suspect]
     Indication: RHEUMATOID ARTHRITIS
     Dosage: 50 mg, UNK
     Dates: start: 200910
  2. ENBREL [Suspect]
     Dosage: 25 mg, UNK (then paused for 1 year)
  3. ENBREL [Suspect]
     Dosage: 25 mg, UNK
  4. ENBREL [Suspect]
     Dosage: 50 mg, weekly
     Route: 058
     Dates: start: 201111, end: 201207
  5. NOVAMINSULFON LICHTENSTEIN [Concomitant]
     Dosage: 500 mg, UNK
  6. AMINEURIN [Concomitant]
     Dosage: 10 mg, (0-0-1-0)
  7. MONO-EMBOLEX [Concomitant]
     Dosage: 300 IU, 1x/day
     Route: 058
  8. MONO-EMBOLEX [Concomitant]
     Dosage: 300 Unit, qd
     Route: 058
  9. NOVALGIN                           /06276704/ [Concomitant]
     Dosage: drops
  10. PARACETAMOL [Concomitant]
     Dosage: UNK

REACTIONS (1)
  - Breast cancer [Unknown]
